FAERS Safety Report 6179386-6 (Version None)
Quarter: 2009Q2

REPORT INFORMATION
  Report Type: 
  Country: None (occurrence: None)
  Receive Date: 20090505
  Receipt Date: 20090504
  Transmission Date: 20091009
  Serious: Yes (Other)
  Sender: FDA-Public Use
  Company Number: A0782183A

PATIENT
  Age: 64 Year
  Sex: Female

DRUGS (1)
  1. ALLI [Suspect]
     Route: 048

REACTIONS (5)
  - ABDOMINAL DISTENSION [None]
  - ASCITES [None]
  - FAECES DISCOLOURED [None]
  - PYELONEPHRITIS [None]
  - STEATORRHOEA [None]
